FAERS Safety Report 7953925-4 (Version None)
Quarter: 2011Q4

REPORT INFORMATION
  Report Type: 
  Country: None (occurrence: None)
  Receive Date: 20111202
  Receipt Date: 20111124
  Transmission Date: 20120403
  Serious: Yes (Other)
  Sender: FDA-Public Use
  Company Number: DE-AMGEN-DEUSP2011062859

PATIENT
  Age: 80 Year
  Sex: Female

DRUGS (4)
  1. ENBREL [Suspect]
     Indication: PRODUCT USED FOR UNKNOWN INDICATION
     Dosage: UNK
  2. BELOC-ZOC COMP [Concomitant]
     Dosage: UNK
  3. INSULIN [Concomitant]
     Indication: DIABETES MELLITUS
     Dosage: UNK, OVER NIGHT
  4. HYDROCORTISON                      /00028601/ [Concomitant]
     Dosage: UNK

REACTIONS (1)
  - HYPOGLYCAEMIA [None]
